FAERS Safety Report 20546342 (Version 1)
Quarter: 2022Q1

REPORT INFORMATION
  Report Type: Spontaneous
  Country: US (occurrence: None)
  Receive Date: 20220302
  Receipt Date: 20220302
  Transmission Date: 20220423
  Serious: Yes (Hospitalization)
  Sender: FDA-Public Use
  Company Number: None

PATIENT
  Age: 14 Year
  Weight: 51.8 kg

DRUGS (1)
  1. TYLENOL ARTHRITIS PAIN [Suspect]
     Active Substance: ACETAMINOPHEN
     Dosage: FREQUENCY : ONCE;?
     Route: 048
     Dates: start: 20220301, end: 20220302

REACTIONS (2)
  - Incorrect dose administered [None]
  - Suicidal ideation [None]

NARRATIVE: CASE EVENT DATE: 20220301
